FAERS Safety Report 18187993 (Version 1)
Quarter: 2020Q3

REPORT INFORMATION
  Report Type: Spontaneous
  Country: US (occurrence: US)
  Receive Date: 20200824
  Receipt Date: 20200824
  Transmission Date: 20201103
  Serious: Yes (Other)
  Sender: FDA-Public Use
  Company Number: US-HIKMA PHARMACEUTICALS USA INC.-US-H14001-20-03889

PATIENT
  Sex: Male

DRUGS (1)
  1. OXYCODONE [Suspect]
     Active Substance: OXYCODONE
     Indication: PRODUCT USED FOR UNKNOWN INDICATION
     Dosage: UNKNOWN
     Route: 065

REACTIONS (8)
  - Drug dependence [Unknown]
  - Apathy [Unknown]
  - Emotional distress [Unknown]
  - Quality of life decreased [Unknown]
  - Overdose [Unknown]
  - Pain [Unknown]
  - Drug tolerance [Unknown]
  - Emotional disorder [Unknown]
